FAERS Safety Report 6011471-1 (Version None)
Quarter: 2008Q4

REPORT INFORMATION
  Report Type: 
  Country: None (occurrence: None)
  Receive Date: 20081218
  Receipt Date: 20080207
  Transmission Date: 20090506
  Serious: No
  Sender: FDA-Public Use
  Company Number: US-ABBOTT-08P-163-0437402-00

PATIENT
  Sex: Male

DRUGS (4)
  1. MERIDIA [Suspect]
     Indication: WEIGHT DECREASED
     Route: 048
     Dates: start: 20070801, end: 20070831
  2. GEMFIBROZIL [Concomitant]
     Indication: HYPERCHOLESTEROLAEMIA
     Route: 048
  3. PROPRANOLOL [Concomitant]
     Indication: TREMOR
     Route: 048
  4. ESOMEPRAZOLE MAGNESIUM [Concomitant]
     Indication: GASTROOESOPHAGEAL REFLUX DISEASE
     Route: 048

REACTIONS (1)
  - PARAESTHESIA [None]
